FAERS Safety Report 7421690-5 (Version None)
Quarter: 2011Q2

REPORT INFORMATION
  Report Type: 
  Country: None (occurrence: None)
  Receive Date: 20110418
  Receipt Date: 20110413
  Transmission Date: 20111010
  Serious: Yes (Death)
  Sender: FDA-Public Use
  Company Number: GR-PFIZER INC-2011008378

PATIENT
  Age: 61 Year
  Sex: Male
  Weight: 77 kg

DRUGS (5)
  1. TAZOCIN [Suspect]
     Dosage: 4.5 G, 1X/DAY
     Route: 042
     Dates: start: 20090414, end: 20090414
  2. FLAGYL [Concomitant]
     Indication: CHEMICAL PERITONITIS
     Dosage: 0.5 G, 3X/DAY
     Route: 042
     Dates: start: 20090326, end: 20090329
  3. FLAGYL [Concomitant]
     Dosage: 0.5 G, 1X/DAY
     Route: 042
     Dates: start: 20090330, end: 20090330
  4. MEFOXIL [Concomitant]
     Indication: PROPHYLACTIC CHEMOTHERAPY
     Dosage: UNK
     Route: 042
     Dates: start: 20090323, end: 20090325
  5. TAZOCIN [Suspect]
     Indication: POST PROCEDURAL COMPLICATION
     Dosage: 4.5 G, 3X/DAY
     Route: 042
     Dates: start: 20090412, end: 20090413

REACTIONS (1)
  - CARDIO-RESPIRATORY ARREST [None]
